FAERS Safety Report 5076729-1 (Version None)
Quarter: 2006Q3

REPORT INFORMATION
  Report Type: 
  Country: None (occurrence: None)
  Receive Date: 20060725
  Receipt Date: 20060607
  Transmission Date: 20061208
  Serious: No
  Sender: FDA-Public Use
  Company Number: 200613979BWH

PATIENT
  Age: 55 Year
  Sex: Male

DRUGS (5)
  1. NEXAVAR [Suspect]
     Indication: RENAL CELL CARCINOMA STAGE UNSPECIFIED
     Dosage: 400 MG, BID,ORAL
     Route: 048
     Dates: start: 20050901
  2. TOFRANIL [Concomitant]
  3. LEXAPRO [Concomitant]
  4. ARANESP [Concomitant]
  5. XANAX [Concomitant]

REACTIONS (2)
  - ANOREXIA [None]
  - WEIGHT DECREASED [None]
